FAERS Safety Report 12213827 (Version 2)
Quarter: 2016Q2

REPORT INFORMATION
  Report Type: Spontaneous
  Country: US (occurrence: US)
  Receive Date: 20160328
  Receipt Date: 20160414
  Transmission Date: 20160815
  Serious: No
  Sender: FDA-Public Use
  Company Number: US-GLAXOSMITHKLINE-US2016041041

PATIENT
  Sex: Female

DRUGS (2)
  1. ZITHROMAX [Concomitant]
     Active Substance: AZITHROMYCIN DIHYDRATE
  2. TANZEUM [Suspect]
     Active Substance: ALBIGLUTIDE
     Indication: DIABETES MELLITUS
     Dosage: 30 MG, WE

REACTIONS (5)
  - Bronchospasm [Recovered/Resolved]
  - Drug dose omission [Recovered/Resolved]
  - Cough [Recovered/Resolved]
  - Intentional product misuse [Recovered/Resolved]
  - Upper respiratory tract infection [Recovered/Resolved]
